FAERS Safety Report 11304239 (Version 1)
Quarter: 2015Q3

REPORT INFORMATION
  Report Type: Spontaneous
  Country: US (occurrence: US)
  Receive Date: 20150723
  Receipt Date: 20150723
  Transmission Date: 20151125
  Serious: No
  Sender: FDA-Public Use
  Company Number: US-JNJFOC-20150113830

PATIENT
  Age: 65 Year
  Sex: Female
  Weight: 87.09 kg

DRUGS (2)
  1. PEPCID AC [Suspect]
     Active Substance: FAMOTIDINE
     Indication: DYSPEPSIA
     Dosage: 4 TABLETS,IN THE MORNING
     Route: 048
  2. PEPCID AC [Suspect]
     Active Substance: FAMOTIDINE
     Route: 048

REACTIONS (1)
  - Abdominal discomfort [Not Recovered/Not Resolved]

NARRATIVE: CASE EVENT DATE: 20150116
